FAERS Safety Report 9407166 (Version 2)
Quarter: 2013Q3

REPORT INFORMATION
  Report Type: Spontaneous
  Country: US (occurrence: US)
  Receive Date: 20130718
  Receipt Date: 20130909
  Transmission Date: 20140515
  Serious: Yes (Other)
  Sender: FDA-Public Use
  Company Number: US-ELI_LILLY_AND_COMPANY-US201307003723

PATIENT
  Age: 69 Year
  Sex: Female
  Weight: 73.47 kg

DRUGS (1)
  1. FORTEO [Suspect]
     Indication: OSTEOPOROSIS
     Dosage: UNK
     Dates: start: 201107, end: 201306

REACTIONS (6)
  - Renal failure [Unknown]
  - Compression fracture [Recovering/Resolving]
  - Fall [Unknown]
  - Hyperkalaemia [Unknown]
  - Balance disorder [Unknown]
  - Hypercalcaemia [Unknown]
